FAERS Safety Report 19812059 (Version 1)
Quarter: 2021Q3

REPORT INFORMATION
  Report Type: Other
  Country: US (occurrence: US)
  Receive Date: 20210909
  Receipt Date: 20210909
  Transmission Date: 20211014
  Serious: Yes (Other)
  Sender: FDA-Public Use
  Company Number: US-ROCHE-2903939

PATIENT

DRUGS (3)
  1. ATEZOLIZUMAB. [Suspect]
     Active Substance: ATEZOLIZUMAB
     Indication: NON-SMALL CELL LUNG CANCER
     Route: 065
  2. PEMBROLIZUMAB. [Suspect]
     Active Substance: PEMBROLIZUMAB
     Indication: NON-SMALL CELL LUNG CANCER
     Route: 065
  3. NIVOLUMAB [Suspect]
     Active Substance: NIVOLUMAB
     Indication: NON-SMALL CELL LUNG CANCER
     Route: 065

REACTIONS (18)
  - Rash morbilliform [Unknown]
  - Lichenoid keratosis [Unknown]
  - Urticaria [Unknown]
  - Purpura [Unknown]
  - Squamous cell carcinoma of skin [Unknown]
  - Dermatitis [Unknown]
  - Rash pruritic [Unknown]
  - Dermatitis acneiform [Unknown]
  - Herpes zoster [Unknown]
  - Seborrhoeic dermatitis [Unknown]
  - Granulomatous dermatitis [Unknown]
  - Eczema [Unknown]
  - Vitiligo [Unknown]
  - Photosensitivity reaction [Unknown]
  - Dermatitis psoriasiform [Unknown]
  - Xerosis [Unknown]
  - Pneumonitis [Unknown]
  - Skin hyperpigmentation [Unknown]
